FAERS Safety Report 21991590 (Version 2)
Quarter: 2023Q4

REPORT INFORMATION
  Report Type: Report from Study
  Country: US (occurrence: US)
  Receive Date: 20230214
  Receipt Date: 20231109
  Transmission Date: 20240110
  Serious: Yes (Other)
  Sender: FDA-Public Use
  Company Number: US-TAKEDA-2023TUS013735

PATIENT
  Age: 71 Year
  Sex: Female

DRUGS (8)
  1. TEDUGLUTIDE [Suspect]
     Active Substance: TEDUGLUTIDE
     Indication: Small intestinal obstruction
     Dosage: 5 MILLIGRAM, QD
     Route: 065
     Dates: start: 20230127
  2. TEDUGLUTIDE [Suspect]
     Active Substance: TEDUGLUTIDE
     Indication: Small intestinal obstruction
     Dosage: 5 MILLIGRAM, QD
     Route: 065
     Dates: start: 20230127
  3. TEDUGLUTIDE [Suspect]
     Active Substance: TEDUGLUTIDE
     Indication: Small intestinal obstruction
     Dosage: 5 MILLIGRAM, QD
     Route: 065
     Dates: start: 20230127
  4. TEDUGLUTIDE [Suspect]
     Active Substance: TEDUGLUTIDE
     Indication: Small intestinal obstruction
     Dosage: 5 MILLIGRAM, QD
     Route: 065
     Dates: start: 20230127
  5. TEDUGLUTIDE [Suspect]
     Active Substance: TEDUGLUTIDE
     Indication: Short-bowel syndrome
     Dosage: 0.23 MILLILITER, QD
     Route: 058
     Dates: start: 202301
  6. TEDUGLUTIDE [Suspect]
     Active Substance: TEDUGLUTIDE
     Indication: Short-bowel syndrome
     Dosage: 0.23 MILLILITER, QD
     Route: 058
     Dates: start: 202301
  7. TEDUGLUTIDE [Suspect]
     Active Substance: TEDUGLUTIDE
     Indication: Short-bowel syndrome
     Dosage: 0.23 MILLILITER, QD
     Route: 058
     Dates: start: 202301
  8. TEDUGLUTIDE [Suspect]
     Active Substance: TEDUGLUTIDE
     Indication: Short-bowel syndrome
     Dosage: 0.23 MILLILITER, QD
     Route: 058
     Dates: start: 202301

REACTIONS (3)
  - Cardiac failure congestive [Unknown]
  - Underdose [Not Recovered/Not Resolved]
  - Hypervolaemia [Unknown]

NARRATIVE: CASE EVENT DATE: 20230127
